FAERS Safety Report 9651962 (Version 1)
Quarter: 2013Q4

REPORT INFORMATION
  Report Type: Spontaneous
  Country: US (occurrence: US)
  Receive Date: 20131029
  Receipt Date: 20131029
  Transmission Date: 20140711
  Serious: No
  Sender: FDA-Public Use
  Company Number: US-ENDO PHARMACEUTICALS INC.-RANI20130001

PATIENT
  Age: 6 Year
  Sex: Female

DRUGS (1)
  1. RANITIDINE SYRUP (RANITIDINE ORAL SOLUTION USP), 15 MG/ML (MALLC) (RANITIDINE) [Suspect]
     Indication: PRODUCT USED FOR UNKNOWN INDICATION
     Dosage: 15 MG/ML
     Route: 048

REACTIONS (1)
  - Blood glucose increased [Not Recovered/Not Resolved]
